FAERS Safety Report 6441085-0 (Version None)
Quarter: 2009Q4

REPORT INFORMATION
  Report Type: 
  Country: None (occurrence: None)
  Receive Date: 20091116
  Receipt Date: 20091102
  Transmission Date: 20100525
  Serious: Yes (Death, Life-Threatening, Hospitalization)
  Sender: FDA-Public Use
  Company Number: US-MYLANLABS-2009S1019201

PATIENT
  Age: 74 Year
  Sex: Male

DRUGS (4)
  1. ABATACEPT [Suspect]
     Indication: COLITIS ULCERATIVE
     Route: 042
     Dates: start: 20080107, end: 20080403
  2. AZATHIOPRINE [Suspect]
     Dates: start: 20070201, end: 20080426
  3. PREDNISOLONE [Suspect]
     Dates: start: 20080107
  4. ASACOL [Concomitant]

REACTIONS (5)
  - ACUTE CORONARY SYNDROME [None]
  - CEREBRAL ISCHAEMIA [None]
  - COLITIS ULCERATIVE [None]
  - PNEUMONIA [None]
  - SEPSIS [None]
